FAERS Safety Report 15733161 (Version 1)
Quarter: 2018Q4

REPORT INFORMATION
  Report Type: Spontaneous
  Country: US (occurrence: US)
  Receive Date: 20181218
  Receipt Date: 20181218
  Transmission Date: 20190205
  Serious: No
  Sender: FDA-Public Use
  Company Number: US-TEVA-2018-US-986054

PATIENT
  Sex: Female

DRUGS (1)
  1. SUCRALFATE TABLETS [Suspect]
     Active Substance: SUCRALFATE
     Dosage: DOSE STRENGTH: 1 UNKNOWN UNITS
     Route: 065
     Dates: start: 201811

REACTIONS (1)
  - Gastrointestinal disorder [Unknown]

NARRATIVE: CASE EVENT DATE: 201811
